FAERS Safety Report 18238919 (Version 3)
Quarter: 2021Q1

REPORT INFORMATION
  Report Type: Report from Study
  Country: CO (occurrence: CO)
  Receive Date: 20200907
  Receipt Date: 20210111
  Transmission Date: 20210419
  Serious: Yes (Hospitalization)
  Sender: FDA-Public Use
  Company Number: NVSC2020CO198476

PATIENT
  Sex: Female

DRUGS (1)
  1. KISQALI [Suspect]
     Active Substance: RIBOCICLIB
     Indication: BREAST CANCER METASTATIC
     Dosage: 600 MG, QD
     Route: 048

REACTIONS (10)
  - Varicella [Unknown]
  - Skin plaque [Unknown]
  - Hypersensitivity [Unknown]
  - Oral discomfort [Unknown]
  - Fatigue [Unknown]
  - Vomiting [Unknown]
  - Lacrimation increased [Unknown]
  - Weight decreased [Unknown]
  - Decreased immune responsiveness [Unknown]
  - Pruritus [Unknown]
